FAERS Safety Report 9206473 (Version 1)
Quarter: 2013Q2

REPORT INFORMATION
  Report Type: Spontaneous
  Country: IT (occurrence: IT)
  Receive Date: 20130403
  Receipt Date: 20130403
  Transmission Date: 20140414
  Serious: Yes (Other)
  Sender: FDA-Public Use
  Company Number: IT-PFIZER INC-2013105280

PATIENT
  Sex: Female

DRUGS (1)
  1. PIPERACILLIN/TAZOBACTAM [Suspect]

REACTIONS (3)
  - Bronchospasm [Recovered/Resolved with Sequelae]
  - Eye irritation [Recovered/Resolved with Sequelae]
  - Pruritus [Recovered/Resolved with Sequelae]
